FAERS Safety Report 4277286-X (Version None)
Quarter: 2004Q1

REPORT INFORMATION
  Report Type: 
  Country: None (occurrence: None)
  Receive Date: 20040120
  Receipt Date: 20040105
  Transmission Date: 20041129
  Serious: Yes (Disabling)
  Sender: FDA-Public Use
  Company Number: 2004AP00048

PATIENT
  Age: 53 Year
  Sex: Male

DRUGS (3)
  1. BUPIVACAINE [Suspect]
     Indication: EPIDURAL ANAESTHESIA
     Dosage: 10 ML DAILY ED
     Route: 008
  2. BUPIVACAINE [Suspect]
     Indication: EPIDURAL ANAESTHESIA
     Dosage: 15 ML /MIN ED
     Route: 008
  3. BUPIVACAINE [Suspect]
     Indication: EPIDURAL ANAESTHESIA
     Dosage: 10 ML /MIN ED
     Route: 008

REACTIONS (8)
  - ASTHENIA [None]
  - BLOOD PRESSURE SYSTOLIC DECREASED [None]
  - CSF PROTEIN INCREASED [None]
  - FAECAL INCONTINENCE [None]
  - PARALYSIS FLACCID [None]
  - POST PROCEDURAL COMPLICATION [None]
  - RADICULOPATHY [None]
  - URINARY INCONTINENCE [None]
